FAERS Safety Report 8016949-7 (Version None)
Quarter: 2012Q1

REPORT INFORMATION
  Report Type: 
  Country: None (occurrence: None)
  Receive Date: 20120102
  Receipt Date: 20111226
  Transmission Date: 20120608
  Serious: Yes (Other)
  Sender: FDA-Public Use
  Company Number: PHEH2011US012521

PATIENT
  Sex: Female

DRUGS (1)
  1. RECLAST [Suspect]
     Dosage: UNK
     Route: 042
     Dates: start: 20091001

REACTIONS (9)
  - PELVIC FRACTURE [None]
  - MUSCULAR WEAKNESS [None]
  - FALL [None]
  - DENTAL CARIES [None]
  - FEAR [None]
  - ABASIA [None]
  - TOOTH FRACTURE [None]
  - ALOPECIA [None]
  - PAIN [None]
